FAERS Safety Report 22227062 (Version 1)
Quarter: 2023Q2

REPORT INFORMATION
  Report Type: Spontaneous
  Country: FR (occurrence: FR)
  Receive Date: 20230419
  Receipt Date: 20230419
  Transmission Date: 20230722
  Serious: Yes (Other)
  Sender: FDA-Public Use
  Company Number: None

PATIENT
  Age: 64 Year
  Sex: Male

DRUGS (1)
  1. DUPIXENT [Suspect]
     Active Substance: DUPILUMAB
     Indication: Nasal polyps
     Dosage: 1 DF, Q15D
     Route: 058
     Dates: start: 20220925, end: 20221204

REACTIONS (1)
  - Giant cell arteritis [Recovering/Resolving]

NARRATIVE: CASE EVENT DATE: 20221222
